FAERS Safety Report 14223934 (Version 1)
Quarter: 2017Q4

REPORT INFORMATION
  Report Type: Spontaneous
  Country: US (occurrence: US)
  Receive Date: 20171126
  Receipt Date: 20171126
  Transmission Date: 20180321
  Serious: Yes (Hospitalization)
  Sender: FDA-Public Use
  Company Number: US-ASTRAZENECA-2017SF19137

PATIENT
  Age: 767 Month
  Sex: Male
  Weight: 59 kg

DRUGS (11)
  1. SYMBICORT [Suspect]
     Active Substance: BUDESONIDE\FORMOTEROL FUMARATE DIHYDRATE
     Indication: ASTHMA
     Dosage: 160/4.5 MCG, ONE PUFF TWICE DAILY
     Route: 055
     Dates: start: 2014
  2. MELOXICAM. [Concomitant]
     Active Substance: MELOXICAM
     Indication: ASTHMA
     Route: 048
  3. SYMBICORT [Suspect]
     Active Substance: BUDESONIDE\FORMOTEROL FUMARATE DIHYDRATE
     Indication: CHRONIC OBSTRUCTIVE PULMONARY DISEASE
     Dosage: 160/4.5 MCG, ONE PUFF TWICE DAILY
     Route: 055
     Dates: start: 2014
  4. OXYGEN. [Concomitant]
     Active Substance: OXYGEN
     Indication: ASTHMA
     Dosage: 2.0L CONTINUOUSLY
     Route: 045
     Dates: start: 2016
  5. MONTELUKAST [Concomitant]
     Active Substance: MONTELUKAST SODIUM
     Indication: CHRONIC OBSTRUCTIVE PULMONARY DISEASE
     Route: 048
  6. OXYGEN. [Concomitant]
     Active Substance: OXYGEN
     Indication: CHRONIC OBSTRUCTIVE PULMONARY DISEASE
     Dosage: 2.0L CONTINUOUSLY
     Route: 045
     Dates: start: 2016
  7. ALPRAZOLAM. [Concomitant]
     Active Substance: ALPRAZOLAM
     Indication: ANXIETY
     Route: 048
  8. MELOXICAM. [Concomitant]
     Active Substance: MELOXICAM
     Indication: CHRONIC OBSTRUCTIVE PULMONARY DISEASE
     Route: 048
  9. ATORVASTATIN [Concomitant]
     Active Substance: ATORVASTATIN
     Indication: PLATELET ADHESIVENESS ABNORMAL
     Route: 048
     Dates: start: 2016
  10. FINASTERIDE. [Concomitant]
     Active Substance: FINASTERIDE
     Indication: PROSTATIC DISORDER
     Route: 048
  11. MONTELUKAST [Concomitant]
     Active Substance: MONTELUKAST SODIUM
     Indication: ASTHMA
     Route: 048

REACTIONS (7)
  - Influenza [Unknown]
  - Nasopharyngitis [Unknown]
  - Off label use [Unknown]
  - Chest pain [Recovered/Resolved]
  - Dyspnoea [Not Recovered/Not Resolved]
  - Drug dose omission [Unknown]
  - Platelet adhesiveness abnormal [Unknown]

NARRATIVE: CASE EVENT DATE: 201711
